FAERS Safety Report 6547853-9 (Version None)
Quarter: 2010Q1

REPORT INFORMATION
  Report Type: 
  Country: None (occurrence: None)
  Receive Date: 20100124
  Receipt Date: 20091109
  Transmission Date: 20100710
  Serious: No
  Sender: FDA-Public Use
  Company Number: US-ALEXION-A200900940

PATIENT
  Sex: Female

DRUGS (11)
  1. SOLIRIS [Suspect]
     Indication: PAROXYSMAL NOCTURNAL HAEMOGLOBINURIA
     Dosage: 600 MG, QW X4W
     Route: 042
     Dates: start: 20090903
  2. SOLIRIS [Suspect]
     Dosage: 900 MG, Q2W
     Route: 042
     Dates: start: 20090930
  3. SOLIRIS [Suspect]
     Dosage: 900 MG, Q2W
     Route: 042
     Dates: start: 20091104
  4. PREDNISONE [Concomitant]
     Dosage: 15 MG, QD
     Route: 048
  5. SEPTRA [Concomitant]
     Dosage: UNK
     Route: 048
  6. LEVOTHYROXINE SODIUM [Concomitant]
     Dosage: UNK
     Route: 048
  7. ASPIRIN [Concomitant]
     Dosage: UNK
  8. MAALOX                             /00082501/ [Concomitant]
  9. COLACE [Concomitant]
     Route: 048
  10. VITAMIN A [Concomitant]
     Dosage: UNK
     Route: 048
  11. CALCIUM [Concomitant]
     Dosage: UNK
     Route: 048

REACTIONS (1)
  - VASCULITIS [None]
